FAERS Safety Report 8811985 (Version 1)
Quarter: 2012Q4

REPORT INFORMATION
  Report Type: Report from Study
  Country: CA (occurrence: CA)
  Receive Date: 20120927
  Receipt Date: 20120927
  Transmission Date: 20130627
  Serious: Yes (Other)
  Sender: FDA-Public Use
  Company Number: CA-ROCHE-1130420

PATIENT
  Age: 55 Year

DRUGS (1)
  1. AVASTIN [Suspect]
     Indication: COLORECTAL CANCER
     Route: 065
     Dates: start: 201105

REACTIONS (3)
  - Impaired healing [Unknown]
  - Intestinal obstruction [Unknown]
  - Intestinal operation [Unknown]
